FAERS Safety Report 12633907 (Version 2)
Quarter: 2016Q3

REPORT INFORMATION
  Report Type: Spontaneous
  Country: GB (occurrence: GB)
  Receive Date: 20160809
  Receipt Date: 20160913
  Transmission Date: 20161109
  Serious: Yes (Other)
  Sender: FDA-Public Use
  Company Number: GB-TEVA-681884ACC

PATIENT
  Age: 62 Year
  Sex: Female

DRUGS (6)
  1. RITUXIMAB? [Suspect]
     Active Substance: RITUXIMAB
     Route: 065
  2. RCHOP [Suspect]
     Active Substance: CYCLOPHOSPHAMIDE\DOXORUBICIN\PREDNISONE\RITUXIMAB\VINCRISTINE
     Indication: NON-HODGKIN^S LYMPHOMA
     Dosage: SECOND ROUND?
     Route: 065
  3. RCHOP [Suspect]
     Active Substance: CYCLOPHOSPHAMIDE\DOXORUBICIN\PREDNISONE\RITUXIMAB\VINCRISTINE
     Indication: NON-HODGKIN^S LYMPHOMA
     Dosage: SECOND ROUND?
     Route: 065
  4. RCHOP [Suspect]
     Active Substance: CYCLOPHOSPHAMIDE\DOXORUBICIN\PREDNISONE\RITUXIMAB\VINCRISTINE
     Indication: NON-HODGKIN^S LYMPHOMA
     Dosage: SECOND ROUND
     Route: 065
  5. RCHOP [Suspect]
     Active Substance: CYCLOPHOSPHAMIDE\DOXORUBICIN\PREDNISONE\RITUXIMAB\VINCRISTINE
     Indication: NON-HODGKIN^S LYMPHOMA
     Dosage: SECOND ROUND
     Route: 065
  6. RCHOP [Suspect]
     Active Substance: CYCLOPHOSPHAMIDE\DOXORUBICIN\PREDNISONE\RITUXIMAB\VINCRISTINE
     Indication: NON-HODGKIN^S LYMPHOMA
     Dosage: SECOND ROUND
     Route: 065

REACTIONS (7)
  - Adverse drug reaction [Unknown]
  - Sepsis [Unknown]
  - Oral pain [Unknown]
  - Transfusion [Unknown]
  - Weight decreased [Unknown]
  - Vomiting [Unknown]
  - Pyrexia [Unknown]
